FAERS Safety Report 11720070 (Version 1)
Quarter: 2015Q4

REPORT INFORMATION
  Report Type: Spontaneous
  Country: US (occurrence: US)
  Receive Date: 20151110
  Receipt Date: 20151110
  Transmission Date: 20160304
  Serious: Yes (Hospitalization, Other)
  Sender: FDA-Public Use
  Company Number: US-TEVA-607075USA

PATIENT
  Sex: Female
  Weight: 83.99 kg

DRUGS (6)
  1. CARBIDOPA W/LEVODOPA [Concomitant]
     Active Substance: CARBIDOPA\LEVODOPA
     Indication: PARKINSON^S DISEASE
  2. AZILECT [Suspect]
     Active Substance: RASAGILINE MESYLATE
     Indication: PARKINSON^S DISEASE
     Route: 065
  3. ROPINIROLE. [Concomitant]
     Active Substance: ROPINIROLE
     Indication: PARKINSON^S DISEASE
  4. GABAPENTIN. [Concomitant]
     Active Substance: GABAPENTIN
     Indication: PARKINSON^S DISEASE
  5. CARBIDOPA W/LEVODOPA EXTENDED RELEASE [Concomitant]
     Indication: PARKINSON^S DISEASE
  6. AMANTADINE [Concomitant]
     Active Substance: AMANTADINE
     Indication: PARKINSON^S DISEASE

REACTIONS (4)
  - Cholelithiasis [Unknown]
  - Anaesthetic complication [Recovered/Resolved]
  - Small intestinal obstruction [Recovered/Resolved]
  - Knee arthroplasty [Recovered/Resolved]
